FAERS Safety Report 8161878-1 (Version None)
Quarter: 2012Q1

REPORT INFORMATION
  Report Type: 
  Country: None (occurrence: None)
  Receive Date: 20120224
  Receipt Date: 20110812
  Transmission Date: 20120608
  Serious: No
  Sender: FDA-Public Use
  Company Number: US-BRISTOL-MYERS SQUIBB COMPANY-15968241

PATIENT
  Age: 63 Year
  Sex: Female

DRUGS (4)
  1. INSULIN GLARGINE [Suspect]
     Indication: TYPE 2 DIABETES MELLITUS
     Dosage: PARENTRAL INJ,1 DF = 35 UNITS
     Route: 058
     Dates: start: 20060101
  2. LANTUS [Suspect]
     Indication: TYPE 2 DIABETES MELLITUS
     Dosage: 1 DF = 100 IU/ML
     Route: 051
  3. NOVOLOG [Concomitant]
  4. METFORMIN HCL [Suspect]
     Indication: TYPE 2 DIABETES MELLITUS
     Dosage: RESTARTED ON AN UNK DATE
     Dates: start: 20060101

REACTIONS (6)
  - SKIN DISCOLOURATION [None]
  - COUGH [None]
  - WEIGHT INCREASED [None]
  - HEADACHE [None]
  - BLOOD GLUCOSE INCREASED [None]
  - DRY SKIN [None]
